FAERS Safety Report 10213975 (Version 1)
Quarter: 2014Q2

REPORT INFORMATION
  Report Type: Spontaneous
  Country: IN (occurrence: IN)
  Receive Date: 20140603
  Receipt Date: 20140603
  Transmission Date: 20141212
  Serious: Yes (Other)
  Sender: FDA-Public Use
  Company Number: IN-MYLANLABS-2014S1012379

PATIENT
  Age: 44 Year
  Sex: Female

DRUGS (2)
  1. CARBOPLATIN [Suspect]
     Dosage: AUC 5; 6 CYCLES RECEIVED
     Route: 065
     Dates: start: 201001, end: 201005
  2. DOXORUBICIN [Suspect]
     Dosage: 40 MG/M2; 6 CYCLES RECEIVED
     Route: 065
     Dates: start: 201001, end: 201005

REACTIONS (3)
  - Neutropenia [Unknown]
  - Thrombocytopenia [Unknown]
  - Fatigue [Unknown]
